FAERS Safety Report 22357820 (Version 1)
Quarter: 2023Q2

REPORT INFORMATION
  Report Type: Spontaneous
  Country: US (occurrence: US)
  Receive Date: 20230524
  Receipt Date: 20230524
  Transmission Date: 20230722
  Serious: Yes (Other)
  Sender: FDA-Public Use
  Company Number: US-UCBSA-2022033519

PATIENT
  Age: 46 Year
  Sex: Female
  Weight: 114 kg

DRUGS (1)
  1. CIMZIA [Suspect]
     Active Substance: CERTOLIZUMAB PEGOL
     Indication: Rheumatoid arthritis
     Dosage: 400 MILLIGRAM, EV 4 WEEKS
     Route: 058

REACTIONS (5)
  - Rheumatoid arthritis [Not Recovered/Not Resolved]
  - Malaise [Unknown]
  - Pain [Unknown]
  - Gait inability [Unknown]
  - Product dispensing issue [Unknown]

NARRATIVE: CASE EVENT DATE: 20220610
